FAERS Safety Report 12717403 (Version 1)
Quarter: 2016Q3

REPORT INFORMATION
  Report Type: Spontaneous
  Country: US (occurrence: US)
  Receive Date: 20160906
  Receipt Date: 20160906
  Transmission Date: 20161109
  Serious: Yes (Other)
  Sender: FDA-Public Use
  Company Number: US-JNJFOC-20160827682

PATIENT
  Sex: Female

DRUGS (3)
  1. BEVACIZUMAB [Suspect]
     Active Substance: BEVACIZUMAB
     Indication: CERVIX CARCINOMA
     Route: 065
  2. DOXORUBICIN HYDROCHLORIDE. [Suspect]
     Active Substance: DOXORUBICIN HYDROCHLORIDE
     Indication: CERVIX CARCINOMA
     Route: 065
  3. TEMSIROLIMUS [Suspect]
     Active Substance: TEMSIROLIMUS
     Indication: CERVIX CARCINOMA
     Route: 065

REACTIONS (12)
  - Thrombocytopenia [Unknown]
  - Mucosal inflammation [Unknown]
  - Bacterial infection [Unknown]
  - Fatigue [Unknown]
  - Hyponatraemia [Unknown]
  - Intestinal perforation [Unknown]
  - Hypomagnesaemia [Unknown]
  - Off label use [Unknown]
  - Hypokalaemia [Unknown]
  - Neutropenia [Unknown]
  - Hypophosphataemia [Unknown]
  - Product use issue [Unknown]
